FAERS Safety Report 19252450 (Version 2)
Quarter: 2021Q2

REPORT INFORMATION
  Report Type: Other
  Country: PT (occurrence: PT)
  Receive Date: 20210513
  Receipt Date: 20210518
  Transmission Date: 20210717
  Serious: Yes (Other)
  Sender: FDA-Public Use
  Company Number: PT-ROCHE-2825632

PATIENT
  Age: 51 Year
  Sex: Female

DRUGS (80)
  1. NORTRIPTYLINE [Suspect]
     Active Substance: NORTRIPTYLINE
     Indication: COMPLEX REGIONAL PAIN SYNDROME
     Route: 065
  2. DEFLAZACORTE [Suspect]
     Active Substance: DEFLAZACORT
     Indication: SKIN DISORDER
     Route: 065
  3. DOLOCALMA [Suspect]
     Active Substance: METAMIZOLE MAGNESIUM
     Indication: COMPLEX REGIONAL PAIN SYNDROME
     Route: 065
  4. TRITICUM AC [Suspect]
     Active Substance: TRAZODONE HYDROCHLORIDE
     Indication: SLEEP DISORDER
  5. EXXIV [Suspect]
     Active Substance: ETORICOXIB
     Indication: COMPLEX REGIONAL PAIN SYNDROME
     Route: 065
  6. TARGIN [Suspect]
     Active Substance: NALOXONE HYDROCHLORIDE\OXYCODONE HYDROCHLORIDE
     Indication: SKIN DISORDER
     Dosage: 2.5MG/5MG
     Route: 065
  7. IBUPRON [Suspect]
     Active Substance: IBUPROFEN
     Indication: SKIN DISORDER
  8. PALEXIA [Suspect]
     Active Substance: TAPENTADOL HYDROCHLORIDE
     Indication: COMPLEX REGIONAL PAIN SYNDROME
     Route: 065
  9. PALEXIA [Suspect]
     Active Substance: TAPENTADOL HYDROCHLORIDE
     Indication: SLEEP DISORDER
  10. THROMBOCID [PENTOSAN POLYSULFATE SODIUM] [Suspect]
     Active Substance: PENTOSAN POLYSULFATE SODIUM
     Indication: COMPLEX REGIONAL PAIN SYNDROME
     Route: 065
  11. ACEMETACIN [Suspect]
     Active Substance: ACEMETACIN
     Indication: COMPLEX REGIONAL PAIN SYNDROME
     Route: 065
  12. CYCLOBENZAPRINE. [Suspect]
     Active Substance: CYCLOBENZAPRINE
     Indication: COMPLEX REGIONAL PAIN SYNDROME
     Route: 065
  13. NAPROSYN [Suspect]
     Active Substance: NAPROXEN
     Indication: SKIN DISORDER
  14. FOSAVANCE [Suspect]
     Active Substance: ALENDRONATE SODIUM\CHOLECALCIFEROL
     Indication: SKIN DISORDER
  15. DEFLAZACORTE [Suspect]
     Active Substance: DEFLAZACORT
     Indication: COMPLEX REGIONAL PAIN SYNDROME
     Route: 065
  16. ROSILAN [Suspect]
     Active Substance: DEFLAZACORT
     Indication: SLEEP DISORDER
  17. DOLOCALMA [Suspect]
     Active Substance: METAMIZOLE MAGNESIUM
     Indication: SKIN DISORDER
  18. EFEXOR XR [Suspect]
     Active Substance: VENLAFAXINE HYDROCHLORIDE
     Indication: COMPLEX REGIONAL PAIN SYNDROME
     Route: 065
  19. UNISEDIL [Suspect]
     Active Substance: DIAZEPAM
     Indication: SLEEP DISORDER
  20. LYRICA [Suspect]
     Active Substance: PREGABALIN
     Indication: COMPLEX REGIONAL PAIN SYNDROME
     Route: 065
  21. IBUPRON [Suspect]
     Active Substance: IBUPROFEN
     Indication: COMPLEX REGIONAL PAIN SYNDROME
     Route: 065
  22. NAPROSYN [Suspect]
     Active Substance: NAPROXEN
     Indication: SLEEP DISORDER
  23. VENLAFAXINE [Suspect]
     Active Substance: VENLAFAXINE HYDROCHLORIDE
     Indication: SKIN DISORDER
  24. EXXIV [Suspect]
     Active Substance: ETORICOXIB
     Indication: SKIN DISORDER
  25. EXXIV [Suspect]
     Active Substance: ETORICOXIB
     Indication: SLEEP DISORDER
  26. IBUPROFEN. [Suspect]
     Active Substance: IBUPROFEN
     Indication: SKIN DISORDER
  27. TRANSTEC [Suspect]
     Active Substance: BUPRENORPHINE
     Indication: SKIN DISORDER
  28. CODEINE;PARACETAMOL [Suspect]
     Active Substance: ACETAMINOPHEN\CODEINE PHOSPHATE
     Indication: COMPLEX REGIONAL PAIN SYNDROME
     Dosage: 30/500MG THREE TIMES DAILY
     Route: 065
  29. ROSILAN [Suspect]
     Active Substance: DEFLAZACORT
     Indication: COMPLEX REGIONAL PAIN SYNDROME
     Route: 065
  30. DOLOCALMA [Suspect]
     Active Substance: METAMIZOLE MAGNESIUM
     Indication: SLEEP DISORDER
  31. DULOXETINE. [Suspect]
     Active Substance: DULOXETINE
     Indication: SLEEP DISORDER
  32. VENLAFAXINE [Suspect]
     Active Substance: VENLAFAXINE HYDROCHLORIDE
     Indication: SKIN DISORDER
  33. TRITICUM AC [Suspect]
     Active Substance: TRAZODONE HYDROCHLORIDE
     Indication: SKIN DISORDER
  34. TRENTAL [Suspect]
     Active Substance: PENTOXIFYLLINE
     Indication: SKIN DISORDER
     Route: 065
  35. TARGIN [Suspect]
     Active Substance: NALOXONE HYDROCHLORIDE\OXYCODONE HYDROCHLORIDE
     Indication: COMPLEX REGIONAL PAIN SYNDROME
  36. UNISEDIL [Suspect]
     Active Substance: DIAZEPAM
     Indication: SKIN DISORDER
  37. CLONAZEPAM. [Suspect]
     Active Substance: CLONAZEPAM
     Indication: COMPLEX REGIONAL PAIN SYNDROME
     Route: 065
  38. NAPROSYN [Suspect]
     Active Substance: NAPROXEN
     Indication: COMPLEX REGIONAL PAIN SYNDROME
     Route: 065
  39. FOSAVANCE [Suspect]
     Active Substance: ALENDRONATE SODIUM\CHOLECALCIFEROL
     Indication: SLEEP DISORDER
     Dosage: 70MG/5600IU
     Route: 065
  40. VENLAFAXINE [Suspect]
     Active Substance: VENLAFAXINE HYDROCHLORIDE
     Indication: COMPLEX REGIONAL PAIN SYNDROME
     Route: 065
  41. IBUPRON [Suspect]
     Active Substance: IBUPROFEN
     Indication: SLEEP DISORDER
  42. PHENYTOIN. [Suspect]
     Active Substance: PHENYTOIN
     Indication: COMPLEX REGIONAL PAIN SYNDROME
     Route: 065
  43. NORTRIPTYLINE [Suspect]
     Active Substance: NORTRIPTYLINE
     Indication: SKIN DISORDER
  44. DEFLAZACORTE [Suspect]
     Active Substance: DEFLAZACORT
     Indication: SLEEP DISORDER
  45. ADT [Suspect]
     Active Substance: AMITRIPTYLINE HYDROCHLORIDE
     Indication: COMPLEX REGIONAL PAIN SYNDROME
     Route: 065
  46. ADT [Suspect]
     Active Substance: AMITRIPTYLINE HYDROCHLORIDE
     Indication: SKIN DISORDER
     Route: 065
  47. ADT [Suspect]
     Active Substance: AMITRIPTYLINE HYDROCHLORIDE
     Indication: SLEEP DISORDER
  48. ETORICOXIB. [Suspect]
     Active Substance: ETORICOXIB
     Indication: SLEEP DISORDER
  49. TRENTAL [Suspect]
     Active Substance: PENTOXIFYLLINE
     Indication: COMPLEX REGIONAL PAIN SYNDROME
  50. PALEXIA [Suspect]
     Active Substance: TAPENTADOL HYDROCHLORIDE
     Indication: SKIN DISORDER
     Route: 065
  51. TRANSTEC [Suspect]
     Active Substance: BUPRENORPHINE
     Indication: COMPLEX REGIONAL PAIN SYNDROME
     Dosage: 37.5 MCG/H
     Route: 062
  52. TRANSTEC [Suspect]
     Active Substance: BUPRENORPHINE
     Indication: SLEEP DISORDER
  53. AMITRIPTYLINE [Suspect]
     Active Substance: AMITRIPTYLINE
     Indication: PRODUCT USED FOR UNKNOWN INDICATION
     Dosage: UNK
     Route: 065
  54. FOSAVANCE [Suspect]
     Active Substance: ALENDRONATE SODIUM\CHOLECALCIFEROL
     Indication: COMPLEX REGIONAL PAIN SYNDROME
  55. NORTRIPTYLINE [Suspect]
     Active Substance: NORTRIPTYLINE
     Indication: SLEEP DISORDER
  56. VENLAFAXINE [Suspect]
     Active Substance: VENLAFAXINE HYDROCHLORIDE
     Indication: COMPLEX REGIONAL PAIN SYNDROME
     Route: 065
  57. VENLAFAXINE [Suspect]
     Active Substance: VENLAFAXINE HYDROCHLORIDE
     Indication: SLEEP DISORDER
  58. ETORICOXIB. [Suspect]
     Active Substance: ETORICOXIB
     Indication: COMPLEX REGIONAL PAIN SYNDROME
     Route: 048
  59. DULOXETINE. [Suspect]
     Active Substance: DULOXETINE
     Indication: SKIN DISORDER
     Route: 065
  60. VENLAFAXINE [Suspect]
     Active Substance: VENLAFAXINE HYDROCHLORIDE
     Indication: SLEEP DISORDER
  61. TRITICUM AC [Suspect]
     Active Substance: TRAZODONE HYDROCHLORIDE
     Indication: COMPLEX REGIONAL PAIN SYNDROME
     Route: 065
  62. TRENTAL [Suspect]
     Active Substance: PENTOXIFYLLINE
     Indication: SLEEP DISORDER
  63. EFEXOR XR [Suspect]
     Active Substance: VENLAFAXINE HYDROCHLORIDE
     Indication: SLEEP DISORDER
  64. PARACETAMOL [Suspect]
     Active Substance: ACETAMINOPHEN
     Indication: SKIN DISORDER
  65. IBUPROFEN. [Suspect]
     Active Substance: IBUPROFEN
     Indication: COMPLEX REGIONAL PAIN SYNDROME
     Route: 065
  66. UNISEDIL [Suspect]
     Active Substance: DIAZEPAM
     Indication: COMPLEX REGIONAL PAIN SYNDROME
     Route: 065
  67. THROMBOCID [PENTOSAN POLYSULFATE SODIUM] [Suspect]
     Active Substance: PENTOSAN POLYSULFATE SODIUM
     Indication: SKIN DISORDER
  68. THROMBOCID [PENTOSAN POLYSULFATE SODIUM] [Suspect]
     Active Substance: PENTOSAN POLYSULFATE SODIUM
     Indication: SLEEP DISORDER
  69. ROSILAN [Suspect]
     Active Substance: DEFLAZACORT
     Indication: SKIN DISORDER
  70. METAMIZOL [Suspect]
     Active Substance: METAMIZOLE SODIUM
     Indication: COMPLEX REGIONAL PAIN SYNDROME
     Route: 065
  71. ETORICOXIB. [Suspect]
     Active Substance: ETORICOXIB
     Indication: SKIN DISORDER
  72. DULOXETINE. [Suspect]
     Active Substance: DULOXETINE
     Indication: COMPLEX REGIONAL PAIN SYNDROME
     Route: 065
  73. EFEXOR XR [Suspect]
     Active Substance: VENLAFAXINE HYDROCHLORIDE
     Indication: SKIN DISORDER
  74. TARGIN [Suspect]
     Active Substance: NALOXONE HYDROCHLORIDE\OXYCODONE HYDROCHLORIDE
     Indication: SLEEP DISORDER
  75. PARACETAMOL [Suspect]
     Active Substance: ACETAMINOPHEN
     Indication: COMPLEX REGIONAL PAIN SYNDROME
     Dosage: UNK
     Route: 065
  76. PARACETAMOL [Suspect]
     Active Substance: ACETAMINOPHEN
     Indication: SLEEP DISORDER
  77. IBUPROFEN. [Suspect]
     Active Substance: IBUPROFEN
     Indication: SLEEP DISORDER
  78. LYRICA [Suspect]
     Active Substance: PREGABALIN
     Indication: SKIN DISORDER
     Route: 065
  79. LYRICA [Suspect]
     Active Substance: PREGABALIN
     Indication: SLEEP DISORDER
     Route: 065
  80. TRAZODONE [Suspect]
     Active Substance: TRAZODONE HYDROCHLORIDE
     Indication: COMPLEX REGIONAL PAIN SYNDROME
     Route: 065

REACTIONS (19)
  - Back pain [Unknown]
  - Diarrhoea [Unknown]
  - Major depression [Unknown]
  - Hyperaesthesia [Unknown]
  - Pyrexia [Unknown]
  - Muscular weakness [Unknown]
  - Joint contracture [Unknown]
  - Nausea [Unknown]
  - Allodynia [Unknown]
  - Peripheral coldness [Unknown]
  - Skin atrophy [Unknown]
  - Hyperhidrosis [Unknown]
  - Pain [Unknown]
  - Neck pain [Unknown]
  - Suicidal ideation [Unknown]
  - Hypokinesia [Unknown]
  - Drug intolerance [Unknown]
  - Oedema [Unknown]
  - Hypotonia [Unknown]
